FAERS Safety Report 6447243-3 (Version None)
Quarter: 2009Q4

REPORT INFORMATION
  Report Type: 
  Country: None (occurrence: None)
  Receive Date: 20091119
  Receipt Date: 20091109
  Transmission Date: 20100525
  Serious: Yes (Hospitalization, Other)
  Sender: FDA-Public Use
  Company Number: SG-PFIZER INC-2009259795

PATIENT
  Age: 55 Year
  Sex: Male

DRUGS (5)
  1. ZMAX [Suspect]
     Dosage: 2 G, SINGLE
     Route: 048
     Dates: start: 20090803, end: 20090803
  2. DURO-TUSS EXPECTORANT [Concomitant]
     Dosage: 10 ML, 4X/DAY
     Route: 048
     Dates: start: 20090803
  3. FLUIMUCIL [Concomitant]
     Dosage: 600 MG, 2X/DAY
     Route: 048
     Dates: start: 20090731
  4. NUELIN - SLOW RELEASE [Concomitant]
     Dosage: 125 MG, 2X/DAY
     Route: 048
     Dates: start: 20090731
  5. TAMIFLU [Concomitant]
     Indication: INFLUENZA
     Dosage: 75 MG, 2X/DAY
     Route: 048
     Dates: start: 20090730, end: 20090803

REACTIONS (3)
  - COLD SWEAT [None]
  - NAUSEA [None]
  - SYNCOPE [None]
